FAERS Safety Report 17785436 (Version 1)
Quarter: 2020Q2

REPORT INFORMATION
  Report Type: Spontaneous
  Country: US (occurrence: US)
  Receive Date: 20200513
  Receipt Date: 20200513
  Transmission Date: 20200714
  Serious: Yes (Hospitalization)
  Sender: FDA-Public Use
  Company Number: None

PATIENT
  Age: 38 Year
  Sex: Female

DRUGS (1)
  1. HUMIRA [Suspect]
     Active Substance: ADALIMUMAB
     Indication: RHEUMATOID ARTHRITIS
     Dosage: ?          OTHER DOSE:1 PEN (0.4ML);?
     Route: 058
     Dates: start: 20190127

REACTIONS (3)
  - COVID-19 [None]
  - Therapy interrupted [None]
  - Infection [None]

NARRATIVE: CASE EVENT DATE: 20200301
